FAERS Safety Report 5924805-0 (Version None)
Quarter: 2008Q4

REPORT INFORMATION
  Report Type: 
  Country: None (occurrence: None)
  Receive Date: 20081017
  Receipt Date: 20081017
  Transmission Date: 20090506
  Serious: No
  Sender: FDA-Public Use
  Company Number: None

PATIENT
  Age: 52 Year
  Sex: Female
  Weight: 63.05 kg

DRUGS (2)
  1. TRILEPTAL [Suspect]
     Indication: AFFECTIVE DISORDER
     Dosage: 300MG QID PO
     Route: 048
     Dates: start: 20010101
  2. TRILEPTAL [Suspect]
     Indication: BORDERLINE PERSONALITY DISORDER
     Dosage: 300MG QID PO
     Route: 048
     Dates: start: 20010101

REACTIONS (3)
  - AFFECTIVE DISORDER [None]
  - DEPRESSIVE SYMPTOM [None]
  - THERAPEUTIC RESPONSE UNEXPECTED WITH DRUG SUBSTITUTION [None]
